FAERS Safety Report 13665172 (Version 2)
Quarter: 2017Q2

REPORT INFORMATION
  Report Type: Spontaneous
  Country: JP (occurrence: JP)
  Receive Date: 20170619
  Receipt Date: 20170627
  Transmission Date: 20170830
  Serious: Yes (Hospitalization, Other)
  Sender: FDA-Public Use
  Company Number: JP-GILEAD-2017-0277967AA

PATIENT
  Age: 82 Year
  Sex: Female

DRUGS (3)
  1. SULPIRIDE [Concomitant]
     Active Substance: SULPIRIDE
  2. THYRADIN [Concomitant]
     Active Substance: LEVOTHYROXINE
  3. HARVONI [Suspect]
     Active Substance: LEDIPASVIR\SOFOSBUVIR
     Indication: CHRONIC HEPATITIS C
     Dosage: UNK
     Route: 048
     Dates: start: 20170403

REACTIONS (2)
  - Product use issue [Unknown]
  - Gastrointestinal haemorrhage [Unknown]

NARRATIVE: CASE EVENT DATE: 20170612
